FAERS Safety Report 5123224-7 (Version None)
Quarter: 2006Q4

REPORT INFORMATION
  Report Type: 
  Country: None (occurrence: None)
  Receive Date: 20061005
  Receipt Date: 20061003
  Transmission Date: 20070319
  Serious: Yes (Death)
  Sender: FDA-Public Use
  Company Number: BR-2006-027244

PATIENT
  Age: 24 Year
  Sex: Female

DRUGS (5)
  1. SIBLIMA [Suspect]
     Dosage: 1 TAB(S), ORAL
     Route: 048
     Dates: start: 20060701, end: 20060907
  2. DIANE 35 (CYPROTERONE ACETATE, ETHINYLESTRADIOL) COATED TABLET [Suspect]
     Dosage: 1 TAB(S), ORAL
     Route: 048
     Dates: start: 20060501, end: 20060701
  3. YASMIN [Suspect]
     Dosage: 1 TAB(S), ORAL
     Route: 048
     Dates: start: 20060303, end: 20060430
  4. MERCILON (DESOGESTREL, ETHINYLESTRADIOL) [Suspect]
     Dosage: 1 TAB(S), ORAL
     Route: 048
     Dates: end: 20060301
  5. DIPRONA (METAMIZOLE) [Concomitant]

REACTIONS (1)
  - INTRACRANIAL VENOUS SINUS THROMBOSIS [None]
